FAERS Safety Report 4632429-0 (Version None)
Quarter: 2005Q2

REPORT INFORMATION
  Report Type: 
  Country: None (occurrence: None)
  Receive Date: 20050411
  Receipt Date: 20050407
  Transmission Date: 20051028
  Serious: Yes (Death, Hospitalization)
  Sender: FDA-Public Use
  Company Number: PHEH2005US04105

PATIENT
  Age: 58 Year
  Sex: Female

DRUGS (5)
  1. TRILEPTAL [Suspect]
     Dosage: 600 MG, BID
     Route: 048
  2. TRILEPTAL [Suspect]
     Dosage: 48000 MG, ONCE/SINGLE
  3. PROZAC [Concomitant]
  4. BUSPAR [Concomitant]
  5. RISPERDAL [Concomitant]

REACTIONS (4)
  - COMA [None]
  - GASTRIC LAVAGE [None]
  - INTENTIONAL MISUSE [None]
  - INTUBATION [None]
